FAERS Safety Report 6152111-0 (Version None)
Quarter: 2009Q2

REPORT INFORMATION
  Report Type: 
  Country: None (occurrence: None)
  Receive Date: 20090408
  Receipt Date: 20090327
  Transmission Date: 20091009
  Serious: Yes (Death, Hospitalization)
  Sender: FDA-Public Use
  Company Number: 2009AL001890

PATIENT
  Age: 82 Year
  Sex: Female

DRUGS (5)
  1. METFORMIN HCL [Suspect]
     Indication: TYPE 2 DIABETES MELLITUS
     Dosage: 850 MG;BID;PO
     Route: 048
     Dates: start: 20080701
  2. ATENOLOL [Concomitant]
  3. FURIX [Concomitant]
  4. FLORIDIX [Concomitant]
  5. PHYSIOTENS [Concomitant]

REACTIONS (5)
  - BLOOD CREATININE INCREASED [None]
  - BLOOD POTASSIUM INCREASED [None]
  - HAEMOGLOBIN DECREASED [None]
  - HYPOTHERMIA [None]
  - LACTIC ACIDOSIS [None]
